FAERS Safety Report 5482743-4 (Version None)
Quarter: 2007Q4

REPORT INFORMATION
  Report Type: 
  Country: None (occurrence: None)
  Receive Date: 20071011
  Receipt Date: 20070928
  Transmission Date: 20080405
  Serious: Yes (Other)
  Sender: FDA-Public Use
  Company Number: US-PFIZER INC-2007083314

PATIENT
  Sex: Female
  Weight: 61.2 kg

DRUGS (5)
  1. CHANTIX [Suspect]
     Indication: EX-SMOKER
     Dates: start: 20070917, end: 20070927
  2. PROTONIX [Concomitant]
     Route: 048
  3. ATENOLOL [Concomitant]
     Route: 048
  4. NORVASC [Concomitant]
     Route: 048
  5. ACCUPRIL [Concomitant]
     Route: 048

REACTIONS (3)
  - CONTUSION [None]
  - KIDNEY INFECTION [None]
  - THROMBOCYTOPENIA [None]
